FAERS Safety Report 5850539-7 (Version None)
Quarter: 2008Q3

REPORT INFORMATION
  Report Type: 
  Country: None (occurrence: None)
  Receive Date: 20080819
  Receipt Date: 20080819
  Transmission Date: 20090109
  Serious: No
  Sender: FDA-Public Use
  Company Number: None

PATIENT
  Sex: Male
  Weight: 92.1256 kg

DRUGS (2)
  1. CARBIDOPA + LEVODOPA [Suspect]
     Indication: PARKINSON'S DISEASE
     Dosage: 25/100 1 1/2 TAB 7X'S QID P.O.
     Route: 048
  2. CARBIDOPA + LEVODOPA [Suspect]
     Dosage: 25/100 1 1/2 TAB 7X'S QD P.O.
     Route: 048

REACTIONS (4)
  - BURNING SENSATION [None]
  - GLOSSODYNIA [None]
  - PHARMACEUTICAL PRODUCT COMPLAINT [None]
  - THROAT IRRITATION [None]
